FAERS Safety Report 8757955 (Version 5)
Quarter: 2012Q4

REPORT INFORMATION
  Report Type: 
  Country: US (occurrence: US)
  Receive Date: 20120828
  Receipt Date: 20121105
  Transmission Date: 20130627
  Serious: No
  Sender: FDA-Public Use
  Company Number: US-PFIZER INC-2012207316

PATIENT
  Age: 63 Year
  Sex: Female

DRUGS (2)
  1. PREMARIN [Suspect]
     Indication: ATROPHIC VULVOVAGINITIS
     Dosage: UNK
     Route: 067
     Dates: start: 201208
  2. PREMARIN [Suspect]
     Indication: VAGINAL DRYNESS
     Dosage: UNK
     Route: 067

REACTIONS (2)
  - Vaginal odour [Unknown]
  - Product solubility abnormal [Unknown]
